FAERS Safety Report 14859875 (Version 2)
Quarter: 2018Q3

REPORT INFORMATION
  Report Type: Spontaneous
  Country: US (occurrence: US)
  Receive Date: 20180508
  Receipt Date: 20180807
  Transmission Date: 20181010
  Serious: No
  Sender: FDA-Public Use
  Company Number: US-OTSUKA-2018_009104

PATIENT
  Sex: Female
  Weight: 80.73 kg

DRUGS (1)
  1. ONZETRA [Suspect]
     Active Substance: SUMATRIPTAN SUCCINATE
     Indication: MIGRAINE
     Dosage: 11 MG, UNK
     Route: 045
     Dates: start: 20180213

REACTIONS (1)
  - Drug effect incomplete [Unknown]
